FAERS Safety Report 5661413-3 (Version None)
Quarter: 2008Q1

REPORT INFORMATION
  Report Type: 
  Country: None (occurrence: None)
  Receive Date: 20080311
  Receipt Date: 20080303
  Transmission Date: 20080703
  Serious: Yes (Hospitalization)
  Sender: FDA-Public Use
  Company Number: US-PFIZER INC-2008019274

PATIENT
  Sex: Female
  Weight: 80.3 kg

DRUGS (16)
  1. SUTENT [Suspect]
     Indication: RENAL CANCER METASTATIC
     Route: 048
  2. METFORMIN HCL [Concomitant]
  3. LOVASTATIN [Concomitant]
     Dates: start: 20040101
  4. HYDROCHLOROTHIAZIDE [Concomitant]
     Dates: start: 19940101
  5. VALSARTAN [Concomitant]
     Dates: start: 19940101
  6. BONIVA [Concomitant]
     Dates: start: 20070501
  7. PROMETHAZINE [Concomitant]
     Dates: start: 20070101
  8. CALCIUM [Concomitant]
     Dates: start: 20070501
  9. VITAMIN B-12 [Concomitant]
     Dates: start: 20060101
  10. METOPROLOL TARTRATE [Concomitant]
     Dates: start: 19940101
  11. STOMATOLOGICALS, MOUTH PREPARATIONS [Concomitant]
     Dates: start: 20070627
  12. LOPERAMIDE HYDROCHLORIDE [Concomitant]
     Dates: start: 20070704
  13. REGLAN [Concomitant]
     Dates: start: 20070822
  14. LIDODERM [Concomitant]
     Dates: start: 20070905
  15. FIBRE, DIETARY [Concomitant]
     Dates: start: 20080211
  16. MAGIC MOUTHWASH [Concomitant]

REACTIONS (2)
  - CYSTITIS [None]
  - HYPOGLYCAEMIA [None]
